FAERS Safety Report 17486978 (Version 1)
Quarter: 2020Q1

REPORT INFORMATION
  Report Type: Spontaneous
  Country: US (occurrence: US)
  Receive Date: 20200303
  Receipt Date: 20200303
  Transmission Date: 20200409
  Serious: Yes (Other)
  Sender: FDA-Public Use
  Company Number: US-SA-2020SA052626

PATIENT
  Age: 34 Year
  Sex: Female

DRUGS (2)
  1. LEMTRADA [Suspect]
     Active Substance: ALEMTUZUMAB
     Dosage: UNK
     Route: 065
     Dates: start: 201704
  2. LEMTRADA [Suspect]
     Active Substance: ALEMTUZUMAB
     Indication: MULTIPLE SCLEROSIS
     Dosage: UNK
     Route: 065
     Dates: start: 201604

REACTIONS (5)
  - Pemphigoid [Unknown]
  - Lymphocyte count abnormal [Unknown]
  - White blood cell count abnormal [Unknown]
  - Rash vesicular [Unknown]
  - CD4 lymphocytes abnormal [Unknown]

NARRATIVE: CASE EVENT DATE: 20180507
